FAERS Safety Report 26017687 (Version 2)
Quarter: 2025Q4

REPORT INFORMATION
  Report Type: Spontaneous
  Country: US (occurrence: US)
  Receive Date: 20251110
  Receipt Date: 20251231
  Transmission Date: 20260117
  Serious: No
  Sender: Kenvue
  Company Number: US-KENVUE-20251009557

PATIENT
  Age: 80 Year
  Sex: Female

DRUGS (2)
  1. WOMENS ROGAINE UNSCENTED [Suspect]
     Active Substance: MINOXIDIL
     Indication: Alopecia
     Dosage: AS INSTRUCTED, 1X A DAY
     Route: 065
     Dates: start: 20250823
  2. WOMENS ROGAINE UNSCENTED [Suspect]
     Active Substance: MINOXIDIL
     Dosage: APPLIED TO SCALP AS DIRECTED (PATIENT WAS USING THE PRODUCT AS INSTRUCTED ON THE LABEL)
     Route: 048

REACTIONS (4)
  - Alopecia [Not Recovered/Not Resolved]
  - Product storage error [Unknown]
  - Poor quality product administered [Unknown]
  - Product container issue [Unknown]

NARRATIVE: CASE EVENT DATE: 20250823
